FAERS Safety Report 17134819 (Version 1)
Quarter: 2019Q4

REPORT INFORMATION
  Report Type: Report from Study
  Country: FR (occurrence: FR)
  Receive Date: 20191210
  Receipt Date: 20191210
  Transmission Date: 20200122
  Serious: Yes (Other)
  Sender: FDA-Public Use
  Company Number: FR-KYOWAKIRIN-2019AKK019071

PATIENT

DRUGS (1)
  1. KW-0761 [Suspect]
     Active Substance: MOGAMULIZUMAB
     Indication: CUTANEOUS T-CELL LYMPHOMA
     Dosage: UNK
     Route: 041

REACTIONS (1)
  - Autoimmune disorder [Unknown]
